FAERS Safety Report 25468104 (Version 1)
Quarter: 2025Q2

REPORT INFORMATION
  Report Type: Spontaneous
  Country: US (occurrence: US)
  Receive Date: 20250623
  Receipt Date: 20250623
  Transmission Date: 20250717
  Serious: No
  Sender: MERCK SHARP & DOHME LLC
  Company Number: US-009507513-2291456

PATIENT
  Sex: Female
  Weight: 79.4 kg

DRUGS (35)
  1. SOTATERCEPT [Suspect]
     Active Substance: SOTATERCEPT
     Indication: Product used for unknown indication
  2. SOTATERCEPT [Suspect]
     Active Substance: SOTATERCEPT
  3. SOTATERCEPT [Suspect]
     Active Substance: SOTATERCEPT
  4. SOTATERCEPT [Suspect]
     Active Substance: SOTATERCEPT
  5. Ivabradine HCL [Concomitant]
  6. ASPIRIN [Concomitant]
     Active Substance: ASPIRIN
  7. REMERON [Concomitant]
     Active Substance: MIRTAZAPINE
  8. ONDANSETRON HYDROCHLORIDE [Concomitant]
     Active Substance: ONDANSETRON HYDROCHLORIDE
  9. FOLIC ACID [Concomitant]
     Active Substance: FOLIC ACID
  10. NYSTATIN [Concomitant]
     Active Substance: NYSTATIN
  11. TYLENOL [Concomitant]
     Active Substance: ACETAMINOPHEN
  12. OXYCODONE HYDROCHLORIDE [Concomitant]
     Active Substance: OXYCODONE HYDROCHLORIDE
  13. MIRALAX [Concomitant]
     Active Substance: POLYETHYLENE GLYCOL 3350
  14. IMODIUM [Concomitant]
     Active Substance: LOPERAMIDE HYDROCHLORIDE
  15. VITAMIN D3 [Concomitant]
     Active Substance: CHOLECALCIFEROL
  16. PROTONIX [Concomitant]
     Active Substance: PANTOPRAZOLE SODIUM
  17. PROGRAF [Concomitant]
     Active Substance: TACROLIMUS
  18. LASIX [Concomitant]
     Active Substance: FUROSEMIDE
  19. ROBAXIN [Concomitant]
     Active Substance: METHOCARBAMOL
  20. CRESEMBA [Concomitant]
     Active Substance: ISAVUCONAZONIUM SULFATE
  21. Renalvite [Concomitant]
  22. SILDENAFIL CITRATE [Concomitant]
     Active Substance: SILDENAFIL CITRATE
  23. VITAMIN B12 [Concomitant]
     Active Substance: CYANOCOBALAMIN
  24. Mylanta gas [Concomitant]
  25. GABAPENTIN [Concomitant]
     Active Substance: GABAPENTIN
  26. ELIQUIS [Concomitant]
     Active Substance: APIXABAN
  27. VITAMINS [Concomitant]
     Active Substance: VITAMINS
  28. ATOVAQUONE AND PROGUANIL HCL [Concomitant]
     Active Substance: ATOVAQUONE\PROGUANIL HYDROCHLORIDE
  29. CELLCEPT [Concomitant]
     Active Substance: MYCOPHENOLATE MOFETIL
  30. URSODIOL [Concomitant]
     Active Substance: URSODIOL
  31. VALCYTE [Concomitant]
     Active Substance: VALGANCICLOVIR HYDROCHLORIDE
  32. PREDNISONE [Concomitant]
     Active Substance: PREDNISONE
  33. ORENITRAM [Suspect]
     Active Substance: TREPROSTINIL
     Indication: Pulmonary arterial hypertension
     Route: 048
     Dates: start: 20241217
  34. MELATONIN [Concomitant]
     Active Substance: MELATONIN
  35. FLOMAX [Concomitant]
     Active Substance: TAMSULOSIN HYDROCHLORIDE

REACTIONS (2)
  - Injection site bruising [Unknown]
  - Injection site nodule [Unknown]
